FAERS Safety Report 19212332 (Version 1)
Quarter: 2021Q2

REPORT INFORMATION
  Report Type: Spontaneous
  Country: US (occurrence: US)
  Receive Date: 20210504
  Receipt Date: 20210504
  Transmission Date: 20210717
  Serious: No
  Sender: FDA-Public Use
  Company Number: None

PATIENT
  Age: 62 Year
  Sex: Female
  Weight: 72.57 kg

DRUGS (1)
  1. XELJANZ [Suspect]
     Active Substance: TOFACITINIB CITRATE
     Indication: PHARYNGITIS STREPTOCOCCAL
     Dosage: AS DIRECTED
     Route: 048
     Dates: start: 202006

REACTIONS (1)
  - Pharyngitis streptococcal [None]
